FAERS Safety Report 8365830-2 (Version None)
Quarter: 2012Q2

REPORT INFORMATION
  Report Type: 
  Country: None (occurrence: None)
  Receive Date: 20120515
  Receipt Date: 20120430
  Transmission Date: 20120825
  Serious: Yes (Hospitalization)
  Sender: FDA-Public Use
  Company Number: 2012SGN00184

PATIENT
  Age: 64 Year
  Sex: Male

DRUGS (8)
  1. ADCETRIS [Suspect]
     Indication: LYMPHOMA
     Dosage: 1.8 MG/KG
     Dates: start: 20120410
  2. METFORMIN HYDROCHLORIDE [Concomitant]
  3. CELLCEPT [Concomitant]
  4. CRESTOR [Concomitant]
  5. BENADRYL [Concomitant]
  6. BENICAR [Concomitant]
  7. ACTONEL [Concomitant]
  8. COREG [Concomitant]

REACTIONS (1)
  - BLOOD CREATININE INCREASED [None]
